FAERS Safety Report 5421839-X (Version None)
Quarter: 2007Q3

REPORT INFORMATION
  Report Type: 
  Country: None (occurrence: None)
  Receive Date: 20070820
  Receipt Date: 20070718
  Transmission Date: 20080115
  Serious: Yes (Other)
  Sender: FDA-Public Use
  Company Number: 2007US001810

PATIENT
  Age: 58 Year
  Sex: Male

DRUGS (4)
  1. PROGRAF [Suspect]
     Indication: LIVER TRANSPLANT REJECTION
  2. MYCOPHENOLATE MOFETIL [Concomitant]
  3. PREDNISOLONE [Concomitant]
  4. HYDROCORTISONE (HYDROCORTISONE HYDROGEN SUCCINATE) [Concomitant]

REACTIONS (4)
  - BILE DUCT STENOSIS [None]
  - GRAFT VERSUS HOST DISEASE [None]
  - LIVER TRANSPLANT REJECTION [None]
  - POST PROCEDURAL BILE LEAK [None]
